FAERS Safety Report 6813807-8 (Version None)
Quarter: 2010Q3

REPORT INFORMATION
  Report Type: 
  Country: None (occurrence: None)
  Receive Date: 20100702
  Receipt Date: 20090721
  Transmission Date: 20110219
  Serious: Yes (Other)
  Sender: FDA-Public Use
  Company Number: US-ASTRAZENECA-2008UW27610

PATIENT
  Age: 38 Year
  Sex: Female
  Weight: 113.4 kg

DRUGS (7)
  1. SEROQUEL [Suspect]
     Indication: SLEEP DISORDER
     Dosage: 100 TO 300 MG
     Route: 048
     Dates: start: 20010610, end: 20080201
  2. SEROQUEL [Suspect]
     Dosage: 100 TO 200 MG
     Route: 048
     Dates: start: 20080225
  3. XANAX [Concomitant]
     Dates: start: 20080430, end: 20081022
  4. PROZAC [Concomitant]
     Dates: start: 19830214, end: 20070101
  5. PROZAC [Concomitant]
     Route: 048
     Dates: start: 20080225
  6. VALIUM [Concomitant]
     Dates: start: 19981229, end: 20070806
  7. VALIUM [Concomitant]
     Dosage: 2 TO 20 MG
     Route: 048
     Dates: start: 20080225

REACTIONS (5)
  - ADVERSE DRUG REACTION [None]
  - CARPAL TUNNEL SYNDROME [None]
  - PANCREATITIS [None]
  - PNEUMONIA [None]
  - TYPE 1 DIABETES MELLITUS [None]
